FAERS Safety Report 23790905 (Version 1)
Quarter: 2024Q2

REPORT INFORMATION
  Report Type: Other
  Country: US (occurrence: None)
  Receive Date: 20240427
  Receipt Date: 20240427
  Transmission Date: 20240715
  Serious: No
  Sender: FDA-Public Use
  Company Number: US-ROCHE-3553201

PATIENT
  Age: 29 Year
  Sex: Female

DRUGS (6)
  1. OCREVUS [Suspect]
     Active Substance: OCRELIZUMAB
     Indication: Multiple sclerosis
     Route: 065
  2. ASPIRIN [Concomitant]
     Active Substance: ASPIRIN
  3. LAMOTRIGINE [Concomitant]
     Active Substance: LAMOTRIGINE
  4. TRAZODONE [Concomitant]
     Active Substance: TRAZODONE HYDROCHLORIDE
  5. VUMERITY [Concomitant]
     Active Substance: DIROXIMEL FUMARATE
  6. ZIPRASIDONE [Concomitant]
     Active Substance: ZIPRASIDONE

REACTIONS (1)
  - Demyelination [Unknown]
